FAERS Safety Report 9312642 (Version 1)
Quarter: 2013Q2

REPORT INFORMATION
  Report Type: Spontaneous
  Country: CH (occurrence: CH)
  Receive Date: 20130528
  Receipt Date: 20130528
  Transmission Date: 20140414
  Serious: Yes (Other)
  Sender: FDA-Public Use
  Company Number: CH-JNJFOC-20130509686

PATIENT
  Age: 39 Year
  Sex: Male

DRUGS (5)
  1. HALDOL [Suspect]
     Indication: PRODUCT USED FOR UNKNOWN INDICATION
     Dosage: (2-0-3) + 2 X 1 MG/DAY IN RESERVE
     Route: 065
  2. LEPONEX [Suspect]
     Indication: PRODUCT USED FOR UNKNOWN INDICATION
     Dosage: (75 -75-50-75)
     Route: 048
  3. NOZINAN [Suspect]
     Indication: PRODUCT USED FOR UNKNOWN INDICATION
     Dosage: (10-0-50-25) + 3 X 25 MG/DAY IN RESERVE
     Route: 048
  4. EFFEXOR (VENLAFAXINE HYDROCHLORIDE) [Concomitant]
     Route: 065
  5. TEMESTA [Concomitant]
     Route: 048

REACTIONS (2)
  - Leukopenia [Not Recovered/Not Resolved]
  - Thrombocytopenia [Not Recovered/Not Resolved]
